FAERS Safety Report 6600493-5 (Version None)
Quarter: 2010Q1

REPORT INFORMATION
  Report Type: 
  Country: None (occurrence: None)
  Receive Date: 20100223
  Receipt Date: 20100223
  Transmission Date: 20100710
  Serious: Yes (Disabling, Other)
  Sender: FDA-Public Use
  Company Number: None

PATIENT
  Age: 45 Year
  Sex: Male
  Weight: 106.5953 kg

DRUGS (12)
  1. ZOLOFT [Suspect]
     Indication: FATIGUE
     Dosage: 1 DAILY PO
     Route: 048
     Dates: start: 20051213, end: 20060120
  2. ZOLOFT [Suspect]
     Indication: MARITAL PROBLEM
     Dosage: 1 DAILY PO
     Route: 048
     Dates: start: 20051213, end: 20060120
  3. ZOLOFT [Suspect]
     Indication: SINUS HEADACHE
     Dosage: 1 DAILY PO
     Route: 048
     Dates: start: 20051213, end: 20060120
  4. FLUOXETINE HCL [Suspect]
     Indication: FATIGUE
     Dosage: 1 DAILY PO
     Route: 048
     Dates: start: 20060120, end: 20060413
  5. FLUOXETINE HCL [Suspect]
     Indication: INSOMNIA
     Dosage: 1 DAILY PO
     Route: 048
     Dates: start: 20060120, end: 20060413
  6. FLUOXETINE HCL [Suspect]
     Indication: MARITAL PROBLEM
     Dosage: 1 DAILY PO
     Route: 048
     Dates: start: 20060120, end: 20060413
  7. FLUOXETINE HCL [Suspect]
     Indication: SINUS HEADACHE
     Dosage: 1 DAILY PO
     Route: 048
     Dates: start: 20060120, end: 20060413
  8. ABILITY [Concomitant]
  9. LITHIUM CARBONATE [Concomitant]
  10. ZYPREXA [Concomitant]
  11. LITHIUM CARBONATE [Concomitant]
  12. INVEGA [Concomitant]

REACTIONS (45)
  - ABNORMAL BEHAVIOUR [None]
  - AGITATION [None]
  - BIPOLAR I DISORDER [None]
  - CHEST PAIN [None]
  - CHILLS [None]
  - DECREASED APPETITE [None]
  - DISINHIBITION [None]
  - DISORIENTATION [None]
  - DISSOCIATION [None]
  - DISTRACTIBILITY [None]
  - DIVORCED [None]
  - DRUG PRESCRIBING ERROR [None]
  - DRUG WITHDRAWAL SYNDROME [None]
  - DYSPNOEA [None]
  - EXOSTOSIS [None]
  - FLASHBACK [None]
  - HEADACHE [None]
  - HOSTILITY [None]
  - HYPERACUSIS [None]
  - HYPERHIDROSIS [None]
  - HYPERMETROPIA [None]
  - INJURY [None]
  - INSOMNIA [None]
  - MANIA [None]
  - MEMORY IMPAIRMENT [None]
  - MENTAL DISORDER [None]
  - MUSCLE DISORDER [None]
  - MUSCLE SPASMS [None]
  - MUSCLE TWITCHING [None]
  - MUSCULOSKELETAL STIFFNESS [None]
  - MYALGIA [None]
  - NAUSEA [None]
  - NIGHTMARE [None]
  - PAROSMIA [None]
  - PHOTOPHOBIA [None]
  - POST-TRAUMATIC STRESS DISORDER [None]
  - RESTLESS LEGS SYNDROME [None]
  - TEARFULNESS [None]
  - THERAPEUTIC AGENT TOXICITY [None]
  - TRAUMATIC BRAIN INJURY [None]
  - UNDERDOSE [None]
  - UNEMPLOYMENT [None]
  - UNEVALUABLE EVENT [None]
  - VISION BLURRED [None]
  - WEIGHT DECREASED [None]
